FAERS Safety Report 5008964-2 (Version None)
Quarter: 2006Q2

REPORT INFORMATION
  Report Type: 
  Country: None (occurrence: None)
  Receive Date: 20060523
  Receipt Date: 20060316
  Transmission Date: 20061013
  Serious: Yes (Hospitalization)
  Sender: FDA-Public Use
  Company Number: 2006AP01307

PATIENT
  Age: 27613 Day
  Sex: Female
  Weight: 45.2 kg

DRUGS (5)
  1. CRESTOR [Suspect]
     Indication: HYPERCHOLESTEROLAEMIA
     Route: 048
     Dates: start: 20051129
  2. AMOBAN [Concomitant]
     Indication: INSOMNIA
     Route: 048
     Dates: start: 20051129
  3. TIMOPTIC [Concomitant]
     Indication: GLAUCOMA
     Dates: start: 20040506
  4. XALATAN [Concomitant]
     Indication: GLAUCOMA
     Dates: start: 20040506
  5. HYALEIN [Concomitant]
     Indication: SJOGREN'S SYNDROME
     Dates: start: 20040506

REACTIONS (5)
  - CERVICOBRACHIAL SYNDROME [None]
  - CONTUSION [None]
  - DIZZINESS [None]
  - FALL [None]
  - HEADACHE [None]
